FAERS Safety Report 6810818-3 (Version None)
Quarter: 2010Q2

REPORT INFORMATION
  Report Type: 
  Country: None (occurrence: None)
  Receive Date: 20100630
  Receipt Date: 20080519
  Transmission Date: 20101027
  Serious: No
  Sender: FDA-Public Use
  Company Number: US-PFIZER INC-2008044018

PATIENT
  Sex: Female

DRUGS (4)
  1. MICRONASE TAB [Suspect]
     Dates: start: 20060101
  2. LIPITOR [Concomitant]
     Dates: start: 20000101
  3. ZYRTEC [Concomitant]
     Dates: start: 20000101
  4. LUMIGAN [Concomitant]

REACTIONS (1)
  - DRUG INEFFECTIVE [None]
